FAERS Safety Report 5954739-7 (Version None)
Quarter: 2008Q4

REPORT INFORMATION
  Report Type: 
  Country: None (occurrence: None)
  Receive Date: 20081117
  Receipt Date: 20081111
  Transmission Date: 20090506
  Serious: Yes (Hospitalization, Other)
  Sender: FDA-Public Use
  Company Number: US-AMGEN-QUU318482

PATIENT
  Sex: Female

DRUGS (2)
  1. NEULASTA [Suspect]
     Indication: CHEMOTHERAPY
     Dates: start: 20081013
  2. UNSPECIFIED ANTINEOPLASTIC AGENT [Concomitant]
     Dates: start: 20080101

REACTIONS (8)
  - BONE PAIN [None]
  - CONFUSIONAL STATE [None]
  - DIARRHOEA [None]
  - DYSPNOEA [None]
  - HEADACHE [None]
  - METASTASES TO BONE [None]
  - METASTASES TO CENTRAL NERVOUS SYSTEM [None]
  - VOMITING [None]
